FAERS Safety Report 10882222 (Version 2)
Quarter: 2015Q1

REPORT INFORMATION
  Report Type: Spontaneous
  Country: US (occurrence: None)
  Receive Date: 20150226
  Receipt Date: 20150226
  Transmission Date: 20150721
  Serious: Yes (Death, Life-Threatening, Hospitalization, Other)
  Sender: FDA-Public Use
  Company Number: ADR-2015-00386

PATIENT
  Age: 57 Year
  Sex: Female

DRUGS (2)
  1. FENTANYL INTRATHECAL [Suspect]
     Active Substance: FENTANYL
  2. BACLOFEN INTRATHECAL [Suspect]
     Active Substance: BACLOFEN
     Indication: PAIN

REACTIONS (2)
  - Small cell lung cancer [None]
  - Respiratory failure [None]
